FAERS Safety Report 18623752 (Version 1)
Quarter: 2020Q4

REPORT INFORMATION
  Report Type: Spontaneous
  Country: US (occurrence: US)
  Receive Date: 20201216
  Receipt Date: 20201216
  Transmission Date: 20210114
  Serious: Yes (Life-Threatening, Hospitalization, Disabling, Other)
  Sender: FDA-Public Use
  Company Number: None

PATIENT
  Age: 34 Year
  Sex: Female
  Weight: 72.57 kg

DRUGS (8)
  1. FLEXERIL [Suspect]
     Active Substance: CYCLOBENZAPRINE HYDROCHLORIDE
  2. LEXAPRO [Suspect]
     Active Substance: ESCITALOPRAM OXALATE
  3. PERCOCET [Suspect]
     Active Substance: ACETAMINOPHEN\OXYCODONE HYDROCHLORIDE
  4. REQUIP [Suspect]
     Active Substance: ROPINIROLE HYDROCHLORIDE
  5. NEURONTIN [Suspect]
     Active Substance: GABAPENTIN
  6. LORZONE [Suspect]
     Active Substance: CHLORZOXAZONE
  7. CELEBREX [Suspect]
     Active Substance: CELECOXIB
  8. ALLERGAN NATRELLE SALINE FILLED BREAST IMPLANTS [Suspect]
     Active Substance: DEVICE

REACTIONS (29)
  - Sleep disorder [None]
  - Rash [None]
  - Alopecia [None]
  - Drug dependence [None]
  - Recalled product [None]
  - Fatigue [None]
  - Dry eye [None]
  - Irritable bowel syndrome [None]
  - Anxiety [None]
  - Device breakage [None]
  - Hypoaesthesia [None]
  - Arthralgia [None]
  - Dry mouth [None]
  - Gastrooesophageal reflux disease [None]
  - Implant site pain [None]
  - Myalgia [None]
  - Dyspnoea [None]
  - Headache [None]
  - Back pain [None]
  - Joint lock [None]
  - Depression [None]
  - Pain [None]
  - Nausea [None]
  - Impaired quality of life [None]
  - Muscle spasms [None]
  - Memory impairment [None]
  - Disturbance in attention [None]
  - Gastrointestinal disorder [None]
  - Capsular contracture associated with breast implant [None]

NARRATIVE: CASE EVENT DATE: 20180417
